FAERS Safety Report 5741942-4 (Version None)
Quarter: 2008Q2

REPORT INFORMATION
  Report Type: 
  Country: None (occurrence: None)
  Receive Date: 20080519
  Receipt Date: 20080317
  Transmission Date: 20081010
  Serious: No
  Sender: FDA-Public Use
  Company Number: US-KINGPHARMUSA00001-K200800324

PATIENT

DRUGS (3)
  1. TAPAZOLE [Suspect]
     Indication: HYPERTHYROIDISM
     Dosage: 10 MG, BID
     Dates: start: 20070101
  2. TAPAZOLE [Suspect]
     Indication: BASEDOW'S DISEASE
  3. ATENOLOL [Concomitant]
     Dosage: 25 MG, UNK
     Dates: start: 20070101

REACTIONS (4)
  - ARTHRALGIA [None]
  - MUSCLE SPASMS [None]
  - MUSCULAR WEAKNESS [None]
  - MYALGIA [None]
